FAERS Safety Report 23027505 (Version 1)
Quarter: 2023Q4

REPORT INFORMATION
  Report Type: Spontaneous
  Country: CN (occurrence: CN)
  Receive Date: 20231004
  Receipt Date: 20231004
  Transmission Date: 20240109
  Serious: Yes (Other)
  Sender: FDA-Public Use
  Company Number: CN-SCIEGENP-2023SCLIT00517

PATIENT
  Age: 55 Year
  Sex: Female

DRUGS (16)
  1. SERTRALINE HYDROCHLORIDE [Suspect]
     Active Substance: SERTRALINE HYDROCHLORIDE
     Indication: Major depression
     Route: 065
  2. SERTRALINE HYDROCHLORIDE [Suspect]
     Active Substance: SERTRALINE HYDROCHLORIDE
     Indication: Anxiety
     Route: 065
  3. TANDOSPIRONE [Suspect]
     Active Substance: TANDOSPIRONE
     Indication: Major depression
     Route: 065
  4. TANDOSPIRONE [Suspect]
     Active Substance: TANDOSPIRONE
     Indication: Anxiety
  5. AGOMELATINE [Suspect]
     Active Substance: AGOMELATINE
     Indication: Major depression
     Dosage: AT NIGHT
     Route: 065
  6. AGOMELATINE [Suspect]
     Active Substance: AGOMELATINE
     Indication: Anxiety
  7. ESTAZOLAM [Concomitant]
     Active Substance: ESTAZOLAM
     Indication: Discomfort
     Route: 065
  8. LORAZEPAM [Concomitant]
     Active Substance: LORAZEPAM
     Indication: Product used for unknown indication
     Dosage: AT NIGHT
     Route: 065
  9. ATORVASTATIN [Concomitant]
     Active Substance: ATORVASTATIN
     Indication: Hyperlipidaemia
     Dosage: AT NIGHT
  10. FLUOXETINE [Concomitant]
     Active Substance: FLUOXETINE HYDROCHLORIDE
     Indication: Generalised anxiety disorder
     Route: 065
  11. FLUOXETINE [Concomitant]
     Active Substance: FLUOXETINE HYDROCHLORIDE
     Route: 065
  12. ALPRAZOLAM [Concomitant]
     Active Substance: ALPRAZOLAM
     Indication: Generalised anxiety disorder
     Dosage: MORNING
     Route: 065
  13. ALPRAZOLAM [Concomitant]
     Active Substance: ALPRAZOLAM
     Dosage: AT NOON
     Route: 065
  14. ALPRAZOLAM [Concomitant]
     Active Substance: ALPRAZOLAM
     Dosage: AT NIGHT
     Route: 065
  15. ESCITALOPRAM OXALATE [Concomitant]
     Active Substance: ESCITALOPRAM OXALATE
     Indication: Generalised anxiety disorder
     Route: 065
  16. OLANZAPINE [Concomitant]
     Active Substance: OLANZAPINE
     Indication: Generalised anxiety disorder
     Dosage: AT NIGHT
     Route: 065

REACTIONS (2)
  - Haematochezia [Recovered/Resolved]
  - Drug interaction [Unknown]
